FAERS Safety Report 11005832 (Version 3)
Quarter: 2019Q2

REPORT INFORMATION
  Report Type: Spontaneous
  Country: US (occurrence: US)
  Receive Date: 20150409
  Receipt Date: 20190405
  Transmission Date: 20190711
  Serious: Yes (Death, Hospitalization, Other)
  Sender: FDA-Public Use
  Company Number: US-MERCK-1504USA003852

PATIENT
  Sex: Male

DRUGS (3)
  1. JANUVIA [Suspect]
     Active Substance: SITAGLIPTIN PHOSPHATE
     Indication: TYPE 2 DIABETES MELLITUS
     Dosage: 50MG TWICE DAILY
     Route: 048
     Dates: start: 20081003, end: 20090519
  2. JANUMET [Suspect]
     Active Substance: METFORMIN HYDROCHLORIDE\SITAGLIPTIN PHOSPHATE
     Dosage: 50/100MG TWICE DAILY
     Route: 048
     Dates: start: 20090520, end: 20130131
  3. JANUMET [Suspect]
     Active Substance: METFORMIN HYDROCHLORIDE\SITAGLIPTIN PHOSPHATE
     Indication: TYPE 2 DIABETES MELLITUS
     Dosage: 100/2000MG TWICE DAILY
     Route: 048
     Dates: start: 20090520, end: 20130131

REACTIONS (3)
  - Diabetic neuropathy [Unknown]
  - Pancreatic carcinoma [Fatal]
  - Product administration error [Unknown]

NARRATIVE: CASE EVENT DATE: 2009
